FAERS Safety Report 23359010 (Version 1)
Quarter: 2024Q1

REPORT INFORMATION
  Report Type: Spontaneous
  Country: US (occurrence: US)
  Receive Date: 20240102
  Receipt Date: 20240102
  Transmission Date: 20240410
  Serious: No
  Sender: FDA-Public Use
  Company Number: US-MYLANLABS-2023M1129656

PATIENT
  Sex: Female

DRUGS (3)
  1. NEURONTIN [Suspect]
     Active Substance: GABAPENTIN
     Indication: Chest pain
     Dosage: 100 MILLIGRAM, QD, (1 CAPSULE BY MOUTH NIGHTLY)
     Route: 065
  2. NEURONTIN [Suspect]
     Active Substance: GABAPENTIN
     Indication: Chest pain
     Dosage: UNK
     Route: 048
  3. NITROGLYCERIN [Concomitant]
     Active Substance: NITROGLYCERIN
     Indication: Chest pain
     Dosage: UNK, (PLACE 1 TAB UNDER THE TONGUE EVERY 5 MINUTES AS NEEDED FOR CHEST PAIN)
     Route: 065

REACTIONS (1)
  - Off label use [Unknown]
